FAERS Safety Report 15723218 (Version 2)
Quarter: 2018Q4

REPORT INFORMATION
  Report Type: Spontaneous
  Country: US (occurrence: US)
  Receive Date: 20181214
  Receipt Date: 20181228
  Transmission Date: 20190205
  Serious: Yes (Other)
  Sender: FDA-Public Use
  Company Number: US-PFIZER INC-2018513109

PATIENT
  Age: 65 Year
  Sex: Female
  Weight: 68.48 kg

DRUGS (1)
  1. IBRANCE [Suspect]
     Active Substance: PALBOCICLIB
     Indication: BREAST CANCER METASTATIC
     Dosage: 125 MG, CYCLIC(D1-21 Q28 DAYS BY MOUTH)
     Route: 048
     Dates: start: 20181126

REACTIONS (4)
  - Fatigue [Unknown]
  - White blood cell count decreased [Unknown]
  - Neuropathy peripheral [Unknown]
  - Diarrhoea [Unknown]
